FAERS Safety Report 8331454-6 (Version None)
Quarter: 2012Q2

REPORT INFORMATION
  Report Type: 
  Country: None (occurrence: None)
  Receive Date: 20120502
  Receipt Date: 20120418
  Transmission Date: 20120825
  Serious: No
  Sender: FDA-Public Use
  Company Number: US-AMGEN-USASP2012024623

PATIENT
  Sex: Female

DRUGS (3)
  1. ENBREL [Suspect]
     Indication: RHEUMATOID ARTHRITIS
     Dosage: 50 MG, QWK
     Dates: start: 20110602, end: 20111101
  2. CIMZIA [Concomitant]
     Indication: MUSCULOSKELETAL STIFFNESS
     Dosage: UNK
  3. HUMIRA [Concomitant]
     Indication: MUSCULOSKELETAL STIFFNESS
     Dosage: UNK

REACTIONS (2)
  - MUSCULOSKELETAL STIFFNESS [None]
  - HEADACHE [None]
